FAERS Safety Report 5655102-9 (Version None)
Quarter: 2008Q1

REPORT INFORMATION
  Report Type: 
  Country: None (occurrence: None)
  Receive Date: 20080307
  Receipt Date: 20071212
  Transmission Date: 20080703
  Serious: No
  Sender: FDA-Public Use
  Company Number: A0698592A

PATIENT
  Sex: Female

DRUGS (11)
  1. REQUIP [Suspect]
     Indication: RESTLESS LEGS SYNDROME
     Route: 048
  2. LYRICA [Concomitant]
  3. CYMBALTA [Concomitant]
  4. NASONEX [Concomitant]
  5. ZANAFLEX [Concomitant]
  6. OXYCODONE HCL [Concomitant]
  7. METHADONE HCL [Concomitant]
  8. AMBIEN [Concomitant]
  9. L-TRYPTOPHAN [Concomitant]
  10. ALLEGRA [Concomitant]
  11. ELOCON [Concomitant]

REACTIONS (1)
  - DRUG INEFFECTIVE [None]
